FAERS Safety Report 20438857 (Version 1)
Quarter: 2022Q1

REPORT INFORMATION
  Report Type: Report from Study
  Country: US (occurrence: US)
  Receive Date: 20220207
  Receipt Date: 20220207
  Transmission Date: 20220423
  Serious: Yes (Hospitalization)
  Sender: FDA-Public Use
  Company Number: US-GILEAD-2022-0568486

PATIENT
  Age: 15 Year
  Sex: Female

DRUGS (13)
  1. AZTREONAM LYSINE [Suspect]
     Active Substance: AZTREONAM LYSINE
     Indication: Cystic fibrosis
     Dosage: 75 MG, TID
     Route: 055
  2. ORKAMBI [Concomitant]
     Active Substance: IVACAFTOR\LUMACAFTOR
  3. TRIKAFTA [Concomitant]
     Active Substance: ELEXACAFTOR\IVACAFTOR\TEZACAFTOR
  4. SINGULAIR [Concomitant]
     Active Substance: MONTELUKAST SODIUM
  5. MEPHYTON [Concomitant]
     Active Substance: PHYTONADIONE
  6. VITAMINS NOS [Concomitant]
     Active Substance: VITAMINS
  7. XOPENEX [Concomitant]
     Active Substance: LEVALBUTEROL HYDROCHLORIDE
  8. URSODIOL [Concomitant]
     Active Substance: URSODIOL
  9. ZENPEP [Concomitant]
     Active Substance: PANCRELIPASE AMYLASE\PANCRELIPASE LIPASE\PANCRELIPASE PROTEASE
  10. VITAMIN D NOS [Concomitant]
     Active Substance: VITAMIN D NOS
  11. PULMOZYME [Concomitant]
     Active Substance: DORNASE ALFA
  12. PREVACID [Concomitant]
     Active Substance: LANSOPRAZOLE
  13. CYPROHEPTADINE [Concomitant]
     Active Substance: CYPROHEPTADINE

REACTIONS (1)
  - Cystic fibrosis respiratory infection suppression [Unknown]

NARRATIVE: CASE EVENT DATE: 20211201
